FAERS Safety Report 5713194-2 (Version None)
Quarter: 2008Q2

REPORT INFORMATION
  Report Type: 
  Country: None (occurrence: None)
  Receive Date: 20080422
  Receipt Date: 19880923
  Transmission Date: 20081010
  Serious: Yes (Death)
  Sender: FDA-Public Use
  Company Number: GB-ROCHE-10581

PATIENT
  Age: 39 Year
  Sex: Male
  Weight: 52 kg

DRUGS (3)
  1. GANCICLOVIR SODIUM [Suspect]
     Route: 042
     Dates: start: 19880908, end: 19880916
  2. FOSCARNET [Concomitant]
  3. ZIDOVUDINE [Concomitant]

REACTIONS (2)
  - CONCOMITANT DISEASE AGGRAVATED [None]
  - DEATH [None]
